FAERS Safety Report 6057122-1 (Version None)
Quarter: 2009Q1

REPORT INFORMATION
  Report Type: 
  Country: None (occurrence: None)
  Receive Date: 20090126
  Receipt Date: 20090126
  Transmission Date: 20090719
  Serious: Yes (Life-Threatening, Hospitalization, Disabling)
  Sender: FDA-Public Use
  Company Number: None

PATIENT
  Age: 47 Year
  Sex: Female
  Weight: 131.5431 kg

DRUGS (1)
  1. ABILIFY [Suspect]
     Dosage: 30 MG 2X DAILY PO
     Route: 048
     Dates: start: 20080601, end: 20080831

REACTIONS (9)
  - ABNORMAL BEHAVIOUR [None]
  - ACTIVITIES OF DAILY LIVING IMPAIRED [None]
  - APATHY [None]
  - APHASIA [None]
  - CATATONIA [None]
  - CONTUSION [None]
  - GAIT DISTURBANCE [None]
  - MOBILITY DECREASED [None]
  - OEDEMA PERIPHERAL [None]
